FAERS Safety Report 19814184 (Version 1)
Quarter: 2021Q3

REPORT INFORMATION
  Report Type: Report from Study
  Country: DE (occurrence: DE)
  Receive Date: 20210910
  Receipt Date: 20210910
  Transmission Date: 20211014
  Serious: Yes (Other)
  Sender: FDA-Public Use
  Company Number: DE-TEVA-2021-DE-1950369

PATIENT
  Age: 40 Year
  Sex: Female

DRUGS (18)
  1. L?THYROX [Concomitant]
     Active Substance: LEVOTHYROXINE SODIUM
     Dosage: 75MICROGRAM
  2. METHYLSULFONYLMETHANE [Concomitant]
     Active Substance: DIMETHYL SULFONE
  3. OCREVUS [Suspect]
     Active Substance: OCRELIZUMAB
     Dosage: 600MILLIGRAM
     Route: 042
     Dates: start: 20200907
  4. ACICLOVIR [Suspect]
     Active Substance: ACYCLOVIR
     Indication: PRODUCT USED FOR UNKNOWN INDICATION
     Route: 065
  5. OCREVUS [Suspect]
     Active Substance: OCRELIZUMAB
     Indication: PRIMARY PROGRESSIVE MULTIPLE SCLEROSIS
     Dosage: 300MILLIGRAM
     Route: 042
     Dates: start: 20190806
  6. ESCITALOPRAM [Concomitant]
     Active Substance: ESCITALOPRAM OXALATE
     Dosage: 20MILLIGRAM
  7. SELENASE [SODIUM SELENITE] [Concomitant]
  8. OCREVUS [Suspect]
     Active Substance: OCRELIZUMAB
     Indication: RELAPSING-REMITTING MULTIPLE SCLEROSIS
     Dosage: DATE OF TREATMENT: 07/SEP/2020
     Route: 042
     Dates: start: 20200305
  9. CORTISONE [Concomitant]
     Active Substance: CORTISONE
     Indication: PREMEDICATION
     Dates: start: 20200305, end: 20200305
  10. ATOSIL [PROMETHAZINE HYDROCHLORIDE] [Concomitant]
     Active Substance: PROMETHAZINE HYDROCHLORIDE
     Dosage: 75MILLIGRAM
  11. DULOXETINE. [Concomitant]
     Active Substance: DULOXETINE
  12. BETMIGA [Concomitant]
     Active Substance: MIRABEGRON
  13. BEDROCAN [Concomitant]
     Active Substance: .DELTA.8-TETRAHYDROCANNABINOL\HERBALS
  14. PFIZER?BIONTECH COVID?19 VACCINE [Suspect]
     Active Substance: TOZINAMERAN
     Indication: PRODUCT USED FOR UNKNOWN INDICATION
     Dosage: SECOND VACCINATION
     Route: 065
     Dates: start: 20210525
  15. HEPATITIS B VACCINE [Suspect]
     Active Substance: HEPATITIS B VIRUS VACCINE
     Indication: PRODUCT USED FOR UNKNOWN INDICATION
     Route: 065
  16. THYROX [Concomitant]
  17. URIVESC [Concomitant]
     Active Substance: TROSPIUM CHLORIDE
  18. PYOLYSIN [Concomitant]
     Indication: WOUND
     Dosage: WOUND AND HEALING

REACTIONS (18)
  - Sciatica [Not Recovered/Not Resolved]
  - Skin odour abnormal [Recovered/Resolved]
  - Alopecia [Recovered/Resolved]
  - Hypoaesthesia [Not Recovered/Not Resolved]
  - Dermatitis allergic [Unknown]
  - Urinary incontinence [Not Recovered/Not Resolved]
  - Hot flush [Recovered/Resolved]
  - Genital tract inflammation [Not Recovered/Not Resolved]
  - Burning sensation [Not Recovered/Not Resolved]
  - Dry skin [Recovered/Resolved]
  - Genital herpes [Recovered/Resolved]
  - Fatigue [Not Recovered/Not Resolved]
  - Multiple sclerosis [Not Recovered/Not Resolved]
  - B-lymphocyte count increased [Recovered/Resolved]
  - Rhinorrhoea [Recovered/Resolved]
  - Reaction to excipient [Not Recovered/Not Resolved]
  - Hypersensitivity [Not Recovered/Not Resolved]
  - Prurigo [Not Recovered/Not Resolved]

NARRATIVE: CASE EVENT DATE: 20190806
